FAERS Safety Report 7486272-8 (Version None)
Quarter: 2011Q2

REPORT INFORMATION
  Report Type: 
  Country: None (occurrence: None)
  Receive Date: 20110517
  Receipt Date: 20110401
  Transmission Date: 20111010
  Serious: No
  Sender: FDA-Public Use
  Company Number: A0921102A

PATIENT
  Age: 67 Year
  Sex: Female

DRUGS (2)
  1. VOTRIENT [Suspect]
     Dosage: 3TAB PER DAY
     Route: 048
     Dates: start: 20101201
  2. UNKNOWN [Concomitant]

REACTIONS (6)
  - NONSPECIFIC REACTION [None]
  - PRURITUS [None]
  - HAIR COLOUR CHANGES [None]
  - SKIN DISORDER [None]
  - ERYTHEMA [None]
  - INFLAMMATION [None]
